FAERS Safety Report 11931398 (Version 1)
Quarter: 2016Q1

REPORT INFORMATION
  Report Type: Spontaneous
  Country: US (occurrence: US)
  Receive Date: 20160120
  Receipt Date: 20160120
  Transmission Date: 20160526
  Serious: No
  Sender: FDA-Public Use
  Company Number: US-INCYTE CORPORATION-2015IN004249

PATIENT
  Sex: Female

DRUGS (12)
  1. LEVOTHYROXINE. [Concomitant]
     Active Substance: LEVOTHYROXINE
  2. BUPROPION. [Concomitant]
     Active Substance: BUPROPION
  3. CITALOPRAM [Concomitant]
     Active Substance: CITALOPRAM HYDROBROMIDE
  4. JAKAFI [Suspect]
     Active Substance: RUXOLITINIB
     Indication: POLYCYTHAEMIA VERA
     Dosage: 15 MG, BID
     Route: 048
     Dates: start: 20150515
  5. FISH OIL [Concomitant]
     Active Substance: FISH OIL
  6. JUICE PLUS [Concomitant]
     Active Substance: DIETARY SUPPLEMENT
  7. BIOTIN [Concomitant]
     Active Substance: BIOTIN
  8. COLCHICINE. [Concomitant]
     Active Substance: COLCHICINE
  9. VITAMIN D                          /00107901/ [Concomitant]
     Active Substance: ERGOCALCIFEROL
  10. ATENOLOL. [Concomitant]
     Active Substance: ATENOLOL
  11. CIPROFLOXACIN. [Concomitant]
     Active Substance: CIPROFLOXACIN
  12. CALCIUM PLUS VITAMIN D [Concomitant]
     Active Substance: CALCIUM\VITAMIN D

REACTIONS (3)
  - Night sweats [Recovered/Resolved]
  - Faeces pale [Unknown]
  - Medication error [Unknown]
